FAERS Safety Report 5114213-7 (Version None)
Quarter: 2006Q3

REPORT INFORMATION
  Report Type: 
  Country: None (occurrence: None)
  Receive Date: 20060925
  Receipt Date: 20060920
  Transmission Date: 20061208
  Serious: Yes (Hospitalization)
  Sender: FDA-Public Use
  Company Number: FR-ROXANE LABORATORIES, INC-2006-DE-05054GD

PATIENT
  Sex: Male

DRUGS (2)
  1. MORPHINE [Suspect]
     Indication: PROCEDURAL PAIN
     Dosage: PATIENT-CONTROLLED ANALGESIA 0.5 MG/ML, BOLUS 2 ML, LOCKOUT PERIOD 12 MIN, NO BASAL INFUSION
     Route: 042
  2. PARACETAMOL [Concomitant]
     Route: 048

REACTIONS (3)
  - DEVICE FAILURE [None]
  - INCORRECT DRUG ADMINISTRATION RATE [None]
  - RESPIRATORY DEPRESSION [None]
